FAERS Safety Report 9380919 (Version 1)
Quarter: 2013Q3

REPORT INFORMATION
  Report Type: Report from Study
  Country: AR (occurrence: AR)
  Receive Date: 20130703
  Receipt Date: 20130703
  Transmission Date: 20140515
  Serious: Yes (Other)
  Sender: FDA-Public Use
  Company Number: AR-ROCHE-1243077

PATIENT
  Sex: Female
  Weight: 71 kg

DRUGS (5)
  1. MABTHERA [Suspect]
     Indication: B-CELL LYMPHOMA
     Route: 065
  2. CYCLOPHOSPHAMIDE [Concomitant]
     Indication: B-CELL LYMPHOMA
  3. VINCRISTINE [Concomitant]
     Indication: B-CELL LYMPHOMA
  4. PREDNISOLONE [Concomitant]
     Indication: B-CELL LYMPHOMA
  5. DOXORUBICIN [Concomitant]
     Indication: B-CELL LYMPHOMA

REACTIONS (1)
  - Germ cell cancer metastatic [Unknown]
